FAERS Safety Report 7457777-0 (Version None)
Quarter: 2011Q2

REPORT INFORMATION
  Report Type: 
  Country: None (occurrence: None)
  Receive Date: 20110504
  Receipt Date: 20110502
  Transmission Date: 20111010
  Serious: Yes (Death)
  Sender: FDA-Public Use
  Company Number: DE-ROCHE-774709

PATIENT
  Sex: Male
  Weight: 76 kg

DRUGS (4)
  1. OXALIPLATIN [Concomitant]
     Dates: start: 20100920, end: 20101212
  2. FLUOROURACIL [Concomitant]
     Dates: start: 20100920, end: 20101212
  3. BEVACIZUMAB [Suspect]
     Dosage: DOSE:10
     Route: 065
     Dates: start: 20100929, end: 20101212
  4. FOLINIC ACID [Concomitant]
     Dates: start: 20100920, end: 20101212

REACTIONS (2)
  - NO THERAPEUTIC RESPONSE [None]
  - NEOPLASM MALIGNANT [None]
